FAERS Safety Report 18154297 (Version 1)
Quarter: 2020Q3

REPORT INFORMATION
  Report Type: Spontaneous
  Country: US (occurrence: US)
  Receive Date: 20200817
  Receipt Date: 20200817
  Transmission Date: 20201103
  Serious: Yes (Other)
  Sender: FDA-Public Use
  Company Number: US-JNJFOC-20200810131

PATIENT

DRUGS (1)
  1. LISTERINE ORIGINAL [Suspect]
     Active Substance: EUCALYPTOL\MENTHOL\METHYL SALICYLATE\THYMOL
     Indication: ALCOHOL USE
     Route: 048

REACTIONS (4)
  - Panic attack [Unknown]
  - Alcohol poisoning [Unknown]
  - Alcohol intolerance [Unknown]
  - Intentional product misuse [Unknown]
